FAERS Safety Report 4657451-X (Version None)
Quarter: 2005Q2

REPORT INFORMATION
  Report Type: 
  Country: None (occurrence: None)
  Receive Date: 20050509
  Receipt Date: 20050509
  Transmission Date: 20051028
  Serious: No
  Sender: FDA-Public Use
  Company Number: None

PATIENT
  Sex: Female
  Weight: 62 kg

DRUGS (4)
  1. TOPOTECAN [Suspect]
     Indication: SMALL CELL LUNG CANCER STAGE UNSPECIFIED
     Dosage: 0.75 MG/M2 IV OVER 30 MINUTES, DAYS 1, 2 AND 3 OF EACH CYCLE
     Route: 042
     Dates: start: 20050503
  2. ETOPOSIDE [Suspect]
     Dosage: 70 MG/M2 IV OVER 60 MINUTES, DAYS 8,9, AND 10 OF  EACH CYCLE
     Route: 042
  3. CISPLATIN [Suspect]
     Dosage: 20 MG/M2 IV OVER 60 MINUTES, DAYS 8,9 AND 10  OF EACH CYCLE
     Route: 042
  4. G-CSF [Suspect]
     Dosage: 5 MCG/KG/D SQ DAILY STARTING DAY 11 UNTIL WBC RECOVERY TO }10,000/MM3
     Route: 058

REACTIONS (2)
  - HAEMOPTYSIS [None]
  - OXYGEN SATURATION DECREASED [None]
